FAERS Safety Report 20950350 (Version 1)
Quarter: 2022Q2

REPORT INFORMATION
  Report Type: Report from Study
  Country: CA (occurrence: CA)
  Receive Date: 20220613
  Receipt Date: 20220613
  Transmission Date: 20220721
  Serious: Yes (Disabling)
  Sender: FDA-Public Use
  Company Number: CA-SA-SAC20220609001049

PATIENT
  Age: 48 Year
  Sex: Female

DRUGS (9)
  1. ALEMTUZUMAB [Suspect]
     Active Substance: ALEMTUZUMAB
     Indication: Relapsing-remitting multiple sclerosis
     Dosage: 12 MG, FREQUENCY: 3 TIMES
     Route: 041
     Dates: start: 20200107, end: 20200109
  2. BACLOFEN [Concomitant]
     Active Substance: BACLOFEN
  3. VITAMIN D NOS [Concomitant]
     Active Substance: VITAMIN D NOS
  4. LYRICA [Concomitant]
     Active Substance: PREGABALIN
  5. DULCOLAX (BISACODYL) [Concomitant]
     Active Substance: BISACODYL
  6. COLACE [Concomitant]
     Active Substance: DOCUSATE SODIUM
  7. PIROXICAM [Concomitant]
     Active Substance: PIROXICAM
  8. LORAZEPAM [Concomitant]
     Active Substance: LORAZEPAM
     Dosage: PRN
  9. DALFAMPRIDINE [Concomitant]
     Active Substance: DALFAMPRIDINE

REACTIONS (2)
  - Gait disturbance [Not Recovered/Not Resolved]
  - Drug ineffective [Unknown]
